FAERS Safety Report 6395829-7 (Version None)
Quarter: 2009Q4

REPORT INFORMATION
  Report Type: 
  Country: None (occurrence: None)
  Receive Date: 20091009
  Receipt Date: 20090701
  Transmission Date: 20100525
  Serious: No
  Sender: FDA-Public Use
  Company Number: A0794999A

PATIENT
  Age: 84 Year
  Sex: Female

DRUGS (6)
  1. TYKERB [Suspect]
     Indication: BREAST CANCER
     Dosage: 1250MG PER DAY
     Route: 048
     Dates: start: 20090626
  2. HERCEPTIN [Concomitant]
  3. FASLODEX [Concomitant]
  4. CALCIUM [Concomitant]
  5. VITAMIN B6 [Concomitant]
  6. CENTRUM VITAMIN [Concomitant]

REACTIONS (1)
  - ABDOMINAL PAIN UPPER [None]
